FAERS Safety Report 5851291-1 (Version None)
Quarter: 2008Q3

REPORT INFORMATION
  Report Type: 
  Country: None (occurrence: None)
  Receive Date: 20080820
  Receipt Date: 20080811
  Transmission Date: 20090109
  Serious: Yes (Other)
  Sender: FDA-Public Use
  Company Number: US-ASTRAZENECA-2008UW16491

PATIENT
  Age: 81 Year
  Sex: Female
  Weight: 77.1 kg

DRUGS (5)
  1. ARIMIDEX [Suspect]
     Indication: BREAST CANCER FEMALE
     Route: 048
  2. CIPROFLOXACIN HCL [Concomitant]
  3. AMITRIPTYLINE HCL [Concomitant]
  4. FUROSEMIDE [Concomitant]
  5. COREG [Concomitant]

REACTIONS (5)
  - ALOPECIA [None]
  - ARTHRITIS [None]
  - ASTHENIA [None]
  - CARDIAC FAILURE [None]
  - CARDIAC PACEMAKER INSERTION [None]
